FAERS Safety Report 5900444-2 (Version None)
Quarter: 2008Q3

REPORT INFORMATION
  Report Type: 
  Country: None (occurrence: None)
  Receive Date: 20080926
  Receipt Date: 20080923
  Transmission Date: 20090109
  Serious: Yes (Hospitalization)
  Sender: FDA-Public Use
  Company Number: AU-GILEAD-2008-0018235

PATIENT
  Age: 47 Year
  Sex: Male

DRUGS (3)
  1. TENOFOVIR DISOPROXIL FUMARATE [Suspect]
     Indication: HIV INFECTION
     Dates: start: 20020101
  2. EMTRICITABINE [Concomitant]
     Indication: HIV INFECTION
     Dates: start: 20020101
  3. DELAVIRDINE [Concomitant]
     Indication: HIV INFECTION
     Dates: start: 20020101

REACTIONS (2)
  - NERVOUS SYSTEM DISORDER [None]
  - RENAL TUBULAR ACIDOSIS [None]
